FAERS Safety Report 25773287 (Version 1)
Quarter: 2025Q3

REPORT INFORMATION
  Report Type: Spontaneous
  Country: GB (occurrence: GB)
  Receive Date: 20250908
  Receipt Date: 20250908
  Transmission Date: 20251020
  Serious: Yes (Other)
  Sender: MYLAN
  Company Number: None

PATIENT
  Age: 77 Year

DRUGS (9)
  1. METFORMIN [Suspect]
     Active Substance: METFORMIN HYDROCHLORIDE
     Indication: Product used for unknown indication
     Dosage: 1 GRAM, BID
  2. EMPAGLIFLOZIN [Concomitant]
     Active Substance: EMPAGLIFLOZIN
     Dosage: 1 DOSAGE FORM, AM (10 MG TABLETS ONE TO BE TAKEN DAILY AFTER BREAKFAST - TO SUSPEND?)
  3. SIMVASTATIN [Concomitant]
     Active Substance: SIMVASTATIN
     Dosage: 1 DOSAGE FORM, PM (20 MG TABLETS ONE TO BE TAKEN AT NIGHT)
  4. RIVASTIGMINE [Concomitant]
     Active Substance: RIVASTIGMINE
     Dosage: 1 DOSAGE FORM, QD (9.5 MG / 24 HOURS TRANSDERMAL PATCHES APPLY ONE PATCH EVERY 24 HOURS.)
  5. MIRTAZAPINE [Concomitant]
     Active Substance: MIRTAZAPINE
     Dosage: 1 DOSAGE FORM, PM (45 MG TABLETS ONE TO BE TAKEN AT NIGHT)
  6. GLICLAZIDE [Concomitant]
     Active Substance: GLICLAZIDE
  7. ENALAPRIL [Concomitant]
     Active Substance: ENALAPRIL
     Dosage: 1 DOSAGE FORM, BID (5 MG TABLETS ONE TABLET TWICE DAILY)
  8. LANSOPRAZOLE [Concomitant]
     Active Substance: LANSOPRAZOLE
     Dosage: 1 DOSAGE FORM, AM (15 MG GASTRO-RESISTANT CAPSULES ONE TO BE TAKEN EACH MORNING)
  9. ASPIRIN [Concomitant]
     Active Substance: ASPIRIN
     Dosage: 1 DOSAGE FORM, QD (DISPERSIBLE TABLETS ONE TO BE TAKEN EACH DAY)

REACTIONS (2)
  - Delirium [Unknown]
  - Anaemia vitamin B12 deficiency [Unknown]
